FAERS Safety Report 20923319 (Version 1)
Quarter: 2022Q2

REPORT INFORMATION
  Report Type: Report from Study
  Country: US (occurrence: US)
  Receive Date: 20220607
  Receipt Date: 20220607
  Transmission Date: 20220720
  Serious: No
  Sender: FDA-Public Use
  Company Number: US-NOVARTISTESTPH-NVSC2022US129849

PATIENT
  Sex: Female

DRUGS (1)
  1. KESIMPTA [Suspect]
     Active Substance: OFATUMUMAB
     Indication: Multiple sclerosis
     Route: 058

REACTIONS (6)
  - Injection site injury [Unknown]
  - Injection site pain [Unknown]
  - Device issue [Unknown]
  - Device leakage [Unknown]
  - Device malfunction [Unknown]
  - Wrong technique in device usage process [Unknown]
